FAERS Safety Report 14197102 (Version 1)
Quarter: 2017Q4

REPORT INFORMATION
  Report Type: Report from Study
  Country: US (occurrence: US)
  Receive Date: 20171116
  Receipt Date: 20171116
  Transmission Date: 20180321
  Serious: Yes (Hospitalization)
  Sender: FDA-Public Use
  Company Number: US-ACTELION-A-NJ2017-148428

PATIENT
  Age: 60 Year
  Sex: Male

DRUGS (15)
  1. BREO ELLIPTA [Concomitant]
     Active Substance: FLUTICASONE FUROATE\VILANTEROL TRIFENATATE
     Dosage: 25 MCG, QAM
     Dates: start: 2013
  2. MULTIVITAMIN [Concomitant]
     Active Substance: VITAMINS
     Dosage: UNK, QAM
  3. METOLAZONE. [Concomitant]
     Active Substance: METOLAZONE
     Dosage: 2.5 MG, UNK
     Dates: start: 201701
  4. SPIRIVA [Concomitant]
     Active Substance: TIOTROPIUM BROMIDE MONOHYDRATE
     Dosage: 18 MCG, QAM
     Dates: start: 2013
  5. CIPROFLOXACIN. [Concomitant]
     Active Substance: CIPROFLOXACIN
     Dosage: 500 MG, UNK
  6. VIAGRA [Concomitant]
     Active Substance: SILDENAFIL CITRATE
  7. LISINOPRIL. [Concomitant]
     Active Substance: LISINOPRIL
     Dosage: 5 MG, QD
     Dates: start: 201610
  8. ZOCOR [Concomitant]
     Active Substance: SIMVASTATIN
     Dosage: 10 MG, QD
     Dates: start: 2006
  9. ALEVE [Concomitant]
     Active Substance: NAPROXEN SODIUM
     Dosage: 600 MG, QD
     Dates: start: 2007
  10. ASPIRIN. [Concomitant]
     Active Substance: ASPIRIN
     Dosage: 225 MG, QD
     Dates: start: 2007
  11. OPSUMIT [Suspect]
     Active Substance: MACITENTAN
     Indication: PULMONARY HAEMOSIDEROSIS
     Dosage: 10 MG, QD
     Route: 048
     Dates: start: 20161216
  12. VITAMIN D [Concomitant]
     Active Substance: CHOLECALCIFEROL
     Dosage: 1000 U, QD
     Dates: start: 2007
  13. COREG [Concomitant]
     Active Substance: CARVEDILOL
     Dosage: 3.125 MG, BID
     Dates: start: 201705
  14. ALBUTEROL. [Concomitant]
     Active Substance: ALBUTEROL
     Dosage: UNK, QAM
  15. LASIX [Concomitant]
     Active Substance: FUROSEMIDE
     Dosage: 30 MG, BID
     Dates: start: 2007

REACTIONS (6)
  - Blood count abnormal [Unknown]
  - Wheezing [Not Recovered/Not Resolved]
  - Ear infection [Unknown]
  - Ear congestion [Not Recovered/Not Resolved]
  - Sinusitis [Not Recovered/Not Resolved]
  - Unevaluable event [Not Recovered/Not Resolved]

NARRATIVE: CASE EVENT DATE: 201704
